FAERS Safety Report 10977246 (Version 1)
Quarter: 2015Q2

REPORT INFORMATION
  Report Type: Spontaneous
  Country: BE (occurrence: BE)
  Receive Date: 20150402
  Receipt Date: 20150402
  Transmission Date: 20150821
  Serious: Yes (Death)
  Sender: FDA-Public Use
  Company Number: BE-ROCHE-1557959

PATIENT
  Age: 76 Year
  Sex: Female

DRUGS (16)
  1. MYCOPHENOLATE MOFETIL. [Suspect]
     Active Substance: MYCOPHENOLATE MOFETIL
     Indication: PROPHYLAXIS AGAINST TRANSPLANT REJECTION
     Route: 065
  2. PANTOPRAZOLE [Concomitant]
     Active Substance: PANTOPRAZOLE SODIUM
  3. CANDESARTAN [Concomitant]
     Active Substance: CANDESARTAN
     Indication: HYPERTENSION
  4. BISOPROLOL [Concomitant]
     Active Substance: BISOPROLOL
  5. TRAMADOL [Concomitant]
     Active Substance: TRAMADOL
  6. GANCICLOVIR SODIUM [Suspect]
     Active Substance: GANCICLOVIR SODIUM
     Indication: PNEUMONIA CYTOMEGALOVIRAL
     Route: 042
  7. TACROLIMUS. [Suspect]
     Active Substance: TACROLIMUS
     Indication: PROPHYLAXIS AGAINST TRANSPLANT REJECTION
     Route: 065
  8. ALIZAPRIDE [Concomitant]
     Active Substance: ALIZAPRIDE
  9. GANCICLOVIR SODIUM [Suspect]
     Active Substance: GANCICLOVIR SODIUM
     Route: 042
  10. METHYLPREDNISOLONE. [Suspect]
     Active Substance: METHYLPREDNISOLONE
     Indication: PROPHYLAXIS AGAINST TRANSPLANT REJECTION
     Route: 065
  11. L-THYROXIN [Concomitant]
     Active Substance: LEVOTHYROXINE SODIUM
  12. ESCITALOPRAM [Concomitant]
     Active Substance: ESCITALOPRAM OXALATE
  13. PARACETAMOL [Concomitant]
     Active Substance: ACETAMINOPHEN
  14. ATORVASTATIN [Concomitant]
     Active Substance: ATORVASTATIN
  15. FUROSEMIDE. [Concomitant]
     Active Substance: FUROSEMIDE
  16. CEFAZOLINE [Concomitant]
     Active Substance: CEFAZOLIN SODIUM

REACTIONS (2)
  - Hepatitis B [Unknown]
  - Lactic acidosis [Fatal]
